FAERS Safety Report 6171112-X (Version None)
Quarter: 2009Q2

REPORT INFORMATION
  Report Type: 
  Country: None (occurrence: None)
  Receive Date: 20090429
  Receipt Date: 20090422
  Transmission Date: 20091009
  Serious: Yes (Death)
  Sender: FDA-Public Use
  Company Number: PHHY2009JP09904

PATIENT
  Sex: Female
  Weight: 21 kg

DRUGS (10)
  1. SIMULECT [Suspect]
     Indication: RENAL TRANSPLANT
     Dosage: 10 MG
     Route: 042
     Dates: start: 20070518, end: 20070518
  2. SIMULECT [Suspect]
     Dosage: 10 MG
     Route: 042
     Dates: start: 20070522, end: 20070522
  3. PROGRAF [Suspect]
     Indication: RENAL TRANSPLANT
     Dosage: 0.4 TO 0.8 MG DAILY
     Route: 048
     Dates: start: 20070518
  4. PROGRAF [Suspect]
     Dosage: 0.4-0.8 MG DAILY
     Route: 042
     Dates: start: 20070518
  5. SOL-MELCORT [Suspect]
     Indication: RENAL TRANSPLANT
     Dosage: 10 TO 20 MG DAILY
     Route: 042
     Dates: start: 20070518
  6. CELLCEPT [Suspect]
     Indication: RENAL TRANSPLANT
     Dosage: 340 MG DAILY
     Route: 048
     Dates: start: 20070518, end: 20070528
  7. VICCILLIN [Concomitant]
     Indication: INFECTION
     Dosage: 1500 MG
     Route: 042
     Dates: start: 20070519, end: 20070519
  8. CEFOTAXIME SODIUM [Concomitant]
     Indication: INFECTION
     Dosage: 1500 MG
     Route: 042
     Dates: start: 20070519, end: 20070519
  9. MEROPEN [Concomitant]
     Dosage: 1500 MG
     Route: 042
     Dates: start: 20070519, end: 20070529
  10. VANCOMYCIN HCL [Concomitant]
     Dosage: 750 MG
     Route: 042
     Dates: start: 20070519

REACTIONS (4)
  - CYTOMEGALOVIRUS INFECTION [None]
  - INFECTION [None]
  - MULTI-ORGAN FAILURE [None]
  - SEPSIS [None]
